FAERS Safety Report 10302516 (Version 1)
Quarter: 2014Q3

REPORT INFORMATION
  Report Type: Spontaneous
  Country: JP (occurrence: JP)
  Receive Date: 20140714
  Receipt Date: 20140714
  Transmission Date: 20150326
  Serious: Yes (Hospitalization, Other)
  Sender: FDA-Public Use
  Company Number: PHHY2011JP120555

PATIENT

DRUGS (2)
  1. TASIGNA [Suspect]
     Active Substance: NILOTINIB
     Dosage: 300 MG, UNK
  2. TASIGNA [Suspect]
     Active Substance: NILOTINIB

REACTIONS (3)
  - Cardiac disorder [Unknown]
  - Electrocardiogram QT prolonged [Unknown]
  - Blood glucose increased [Recovering/Resolving]
